FAERS Safety Report 7920846-2 (Version None)
Quarter: 2011Q4

REPORT INFORMATION
  Report Type: 
  Country: None (occurrence: None)
  Receive Date: 20111117
  Receipt Date: 20110811
  Transmission Date: 20120403
  Serious: No
  Sender: FDA-Public Use
  Company Number: US-GLAXOSMITHKLINE-A0940530A

PATIENT
  Age: 44 Year
  Sex: Male

DRUGS (5)
  1. DECADRON [Concomitant]
  2. TARCEVA [Concomitant]
  3. VOTRIENT [Suspect]
     Indication: BRAIN NEOPLASM MALIGNANT
     Dosage: 200MG TWICE PER DAY
     Route: 048
     Dates: start: 20110701
  4. KEPPRA [Concomitant]
  5. AFINITOR [Concomitant]

REACTIONS (1)
  - BLISTER [None]
